FAERS Safety Report 5863415-0 (Version None)
Quarter: 2008Q3

REPORT INFORMATION
  Report Type: 
  Country: None (occurrence: None)
  Receive Date: 20080828
  Receipt Date: 20080822
  Transmission Date: 20090109
  Serious: Yes (Other)
  Sender: FDA-Public Use
  Company Number: PHHY2008BE18856

PATIENT
  Age: 78 Year
  Sex: Female

DRUGS (5)
  1. ACLASTA [Suspect]
     Indication: OSTEOPOROSIS
     Dosage: 5 MG AMP.
     Dates: start: 20071001
  2. MEPARINE [Concomitant]
  3. DIOVANE [Concomitant]
  4. ELTHYRONE [Concomitant]
  5. CORTICOSTEROIDS [Concomitant]

REACTIONS (2)
  - CONDITION AGGRAVATED [None]
  - SYSTEMIC LUPUS ERYTHEMATOSUS RASH [None]
